FAERS Safety Report 8811183 (Version 1)
Quarter: 2012Q4

REPORT INFORMATION
  Report Type: Spontaneous
  Country: US (occurrence: None)
  Receive Date: 20120925
  Receipt Date: 20120925
  Transmission Date: 20130627
  Serious: No
  Sender: FDA-Public Use
  Company Number: None

PATIENT
  Age: 84 Year
  Sex: Female
  Weight: 52.16 kg

DRUGS (2)
  1. CHOLESTYRAMINE [Suspect]
     Indication: IRRITABLE BOWEL SYNDROME
     Dosage: 1 packet-oral, 1 daily, oral
     Route: 048
     Dates: start: 20120605, end: 20120617
  2. CHOLESTYRAMINE [Suspect]
     Indication: HIGH CHOLESTEROL
     Dosage: 1 packet-oral, 1 daily, oral
     Route: 048
     Dates: start: 20120605, end: 20120617

REACTIONS (3)
  - Cough [None]
  - Mucous stools [None]
  - Haematochezia [None]
